FAERS Safety Report 17771647 (Version 2)
Quarter: 2020Q2

REPORT INFORMATION
  Report Type: Report from Study
  Country: US (occurrence: US)
  Receive Date: 20200512
  Receipt Date: 20200605
  Transmission Date: 20200714
  Serious: No
  Sender: FDA-Public Use
  Company Number: US-BAYER-2020-064574

PATIENT
  Age: 67 Year
  Sex: Female

DRUGS (1)
  1. CORICIDIN D [Suspect]
     Active Substance: ACETAMINOPHEN\CHLORPHENIRAMINE MALEATE\PHENYLEPHRINE HYDROCHLORIDE
     Dosage: UNK

REACTIONS (1)
  - Adverse drug reaction [Unknown]
